FAERS Safety Report 24108109 (Version 3)
Quarter: 2024Q3

REPORT INFORMATION
  Report Type: Spontaneous
  Country: US (occurrence: US)
  Receive Date: 20240718
  Receipt Date: 20240805
  Transmission Date: 20241017
  Serious: No
  Sender: ABBVIE
  Company Number: US-ABBVIE-5843459

PATIENT
  Sex: Female

DRUGS (1)
  1. CYCLOSPORINE [Suspect]
     Active Substance: CYCLOSPORINE
     Indication: Product used for unknown indication
     Dosage: OP/EML0.05%60X0.4MLVIAL. 1 VIAL EACH EYE TWICE DAILY.?FORM STRENGTH-0.05%?FORM OF ADMIN:OPHTHALMI...
     Route: 047

REACTIONS (4)
  - Drug ineffective [Unknown]
  - Dry eye [Not Recovered/Not Resolved]
  - Eye irritation [Not Recovered/Not Resolved]
  - Product packaging issue [Unknown]
